FAERS Safety Report 9237092 (Version 1)
Quarter: 2013Q2

REPORT INFORMATION
  Report Type: Spontaneous
  Country: US (occurrence: US)
  Receive Date: 20130417
  Receipt Date: 20130417
  Transmission Date: 20140414
  Serious: Yes (Disabling)
  Sender: FDA-Public Use
  Company Number: CHPA2013US006238

PATIENT
  Age: 47 Year
  Sex: Male

DRUGS (1)
  1. TRANSDERM SCOP [Suspect]
     Indication: VERTIGO
     Dosage: 1 DF, Q72H
     Route: 062

REACTIONS (4)
  - Bedridden [Unknown]
  - Disease recurrence [Unknown]
  - Therapeutic response unexpected [Unknown]
  - Off label use [Unknown]
